FAERS Safety Report 8917833 (Version 2)
Quarter: 2013Q1

REPORT INFORMATION
  Report Type: Spontaneous
  Country: US (occurrence: US)
  Receive Date: 20121120
  Receipt Date: 20130314
  Transmission Date: 20140127
  Serious: No
  Sender: FDA-Public Use
  Company Number: US-ASTRAZENECA-2011SE52681

PATIENT
  Age: 62 Year
  Sex: Female
  Weight: 52.2 kg

DRUGS (9)
  1. NEXIUM [Suspect]
     Indication: GASTRIC DISORDER
     Route: 048
     Dates: start: 2002
  2. NEXIUM [Suspect]
     Indication: ULCER
     Route: 048
     Dates: start: 2002
  3. CRESTOR [Suspect]
     Route: 048
  4. PREDNISONE [Concomitant]
     Indication: ARTHRITIS
     Dosage: DAILY
     Route: 048
     Dates: start: 201210
  5. RANITIDINE [Concomitant]
     Indication: GASTROOESOPHAGEAL REFLUX DISEASE
     Dosage: DAILY
     Route: 048
     Dates: start: 2011
  6. RANITIDINE [Concomitant]
     Indication: ABDOMINAL PAIN UPPER
     Dosage: DAILY
     Route: 048
     Dates: start: 2011
  7. REGLAN [Concomitant]
     Indication: DYSPHAGIA
     Dosage: DAILY
     Route: 048
  8. MAALOX [Concomitant]
     Indication: GASTROOESOPHAGEAL REFLUX DISEASE
     Dosage: DAILY
     Route: 048
  9. TUMS [Concomitant]
     Indication: GASTROOESOPHAGEAL REFLUX DISEASE
     Dosage: DAILY
     Route: 048

REACTIONS (8)
  - Low density lipoprotein increased [Unknown]
  - Dyspepsia [Not Recovered/Not Resolved]
  - Weight increased [Not Recovered/Not Resolved]
  - Arthritis [Not Recovered/Not Resolved]
  - Gastrooesophageal reflux disease [Not Recovered/Not Resolved]
  - Abdominal pain upper [Not Recovered/Not Resolved]
  - Off label use [Unknown]
  - Drug ineffective [Unknown]
